FAERS Safety Report 12171732 (Version 3)
Quarter: 2016Q2

REPORT INFORMATION
  Report Type: Spontaneous
  Country: FR (occurrence: FR)
  Receive Date: 20160311
  Receipt Date: 20160629
  Transmission Date: 20160815
  Serious: Yes (Hospitalization, Other)
  Sender: FDA-Public Use
  Company Number: FR-CONCORDIA PHARMACEUTICALS INC.-CO-ZO-FR-2016-033

PATIENT
  Age: 32 Year
  Sex: Female

DRUGS (6)
  1. ZONEGRAN [Suspect]
     Active Substance: ZONISAMIDE
     Dosage: 300 MG
     Route: 048
     Dates: start: 20160129, end: 201602
  2. ZONEGRAN [Suspect]
     Active Substance: ZONISAMIDE
     Dosage: 400 MG
     Route: 048
     Dates: start: 201602
  3. ZONEGRAN [Suspect]
     Active Substance: ZONISAMIDE
     Indication: EPILEPSY
     Route: 048
     Dates: start: 20120629, end: 20150928
  4. LAMICTAL [Suspect]
     Active Substance: LAMOTRIGINE
     Dosage: 400 MG
     Route: 048
     Dates: start: 20160425
  5. ZONEGRAN [Suspect]
     Active Substance: ZONISAMIDE
     Dosage: 200 MG
     Route: 048
     Dates: start: 20150929, end: 20160128
  6. LAMICTAL [Suspect]
     Active Substance: LAMOTRIGINE
     Indication: EPILEPSY
     Dosage: 300 MG
     Route: 048
     Dates: start: 1999, end: 20160424

REACTIONS (2)
  - Seizure [Recovered/Resolved]
  - Exposure during pregnancy [Not Recovered/Not Resolved]

NARRATIVE: CASE EVENT DATE: 201510
